FAERS Safety Report 5804721-5 (Version None)
Quarter: 2008Q3

REPORT INFORMATION
  Report Type: 
  Country: None (occurrence: None)
  Receive Date: 20080709
  Receipt Date: 20080702
  Transmission Date: 20090109
  Serious: Yes (Other)
  Sender: FDA-Public Use
  Company Number: CA-ASTRAZENECA-2008AC01705

PATIENT
  Age: 57 Year
  Sex: Female

DRUGS (4)
  1. BUPIVACAINE HCL [Suspect]
     Indication: NERVE BLOCK
     Route: 053
  2. LIDOCAINE [Suspect]
     Indication: NERVE BLOCK
     Route: 053
  3. FENTANYL [Concomitant]
     Indication: SEDATION
     Route: 042
  4. MIDAZOLAM HCL [Concomitant]
     Indication: SEDATION
     Route: 042

REACTIONS (7)
  - AGITATION [None]
  - BLOOD PRESSURE INCREASED [None]
  - DISCOMFORT [None]
  - DIZZINESS [None]
  - DYSKINESIA [None]
  - HEART RATE INCREASED [None]
  - LOSS OF CONSCIOUSNESS [None]
